FAERS Safety Report 5214903-1 (Version None)
Quarter: 2007Q1

REPORT INFORMATION
  Report Type: 
  Country: None (occurrence: None)
  Receive Date: 20070122
  Receipt Date: 20070122
  Transmission Date: 20070707
  Serious: No
  Sender: FDA-Public Use
  Company Number: None

PATIENT
  Age: 7 Month
  Sex: Male
  Weight: 6.9 kg

DRUGS (8)
  1. FLUCONAZOLE [Suspect]
     Indication: FUNGAL SKIN INFECTION
     Dosage: SEE IMAGE
     Route: 048
     Dates: start: 20070110
  2. FLUCONAZOLE [Suspect]
     Indication: FUNGAL SKIN INFECTION
     Dosage: SEE IMAGE
     Route: 048
     Dates: start: 20070111
  3. FLUCONAZOLE [Suspect]
     Indication: FUNGAL SKIN INFECTION
     Dosage: SEE IMAGE
     Route: 048
     Dates: start: 20070112
  4. FLUCONAZOLE [Suspect]
     Indication: FUNGAL SKIN INFECTION
     Dosage: SEE IMAGE
     Route: 048
     Dates: start: 20070113
  5. FISH OIL [Concomitant]
  6. KEFLEX [Concomitant]
  7. ACIDOPHILUS [Concomitant]
  8. HOMEOPATHIC REMEDY [Concomitant]

REACTIONS (3)
  - DRUG PRESCRIBING ERROR [None]
  - FONTANELLE BULGING [None]
  - INCORRECT DOSE ADMINISTERED [None]
